FAERS Safety Report 5615221-X (Version None)
Quarter: 2008Q1

REPORT INFORMATION
  Report Type: 
  Country: None (occurrence: None)
  Receive Date: 20080205
  Receipt Date: 20080205
  Transmission Date: 20080703
  Serious: Yes (Other)
  Sender: FDA-Public Use
  Company Number: None

PATIENT
  Age: 59 Year
  Sex: Female
  Weight: 72.5755 kg

DRUGS (1)
  1. CHANTIX [Suspect]
     Indication: SMOKING CESSATION THERAPY
     Dosage: 2 PILLS 1-AM 1-PM
     Dates: start: 20071020, end: 20080120

REACTIONS (8)
  - ANXIETY [None]
  - CHOKING [None]
  - CHOKING SENSATION [None]
  - DYSPNOEA [None]
  - FEELING ABNORMAL [None]
  - ILL-DEFINED DISORDER [None]
  - PALPITATIONS [None]
  - SLEEP DISORDER [None]
